FAERS Safety Report 22229243 (Version 1)
Quarter: 2023Q2

REPORT INFORMATION
  Report Type: Report from Study
  Country: GB (occurrence: GB)
  Receive Date: 20230419
  Receipt Date: 20230419
  Transmission Date: 20230721
  Serious: Yes (Other)
  Sender: FDA-Public Use
  Company Number: GB-SAMSUNG BIOEPIS-SB-2023-04621

PATIENT
  Age: 50 Year
  Sex: Female

DRUGS (1)
  1. IMRALDI [Suspect]
     Active Substance: ADALIMUMAB
     Indication: Iridocyclitis
     Dosage: FORM STRENGTH: 40 MG/0.8 ML;
     Route: 058
     Dates: start: 20221122

REACTIONS (3)
  - Visual impairment [Unknown]
  - Diarrhoea [Unknown]
  - Drug ineffective [Unknown]
